FAERS Safety Report 4989730-0 (Version None)
Quarter: 2006Q2

REPORT INFORMATION
  Report Type: 
  Country: None (occurrence: None)
  Receive Date: 20060501
  Receipt Date: 20060413
  Transmission Date: 20061013
  Serious: Yes (Other)
  Sender: FDA-Public Use
  Company Number: 8016210

PATIENT
  Age: 43 Year
  Sex: Male
  Weight: 77 kg

DRUGS (2)
  1. DELSYM [Suspect]
     Dosage: NI PO
     Route: 048
     Dates: start: 20060213
  2. ZICAM [Suspect]
     Dosage: NI

REACTIONS (7)
  - ABNORMAL BEHAVIOUR [None]
  - ANGER [None]
  - ANOREXIA [None]
  - DRUG ABUSER [None]
  - INSOMNIA [None]
  - THINKING ABNORMAL [None]
  - WEIGHT DECREASED [None]
